FAERS Safety Report 10177191 (Version 1)
Quarter: 2014Q2

REPORT INFORMATION
  Report Type: Spontaneous
  Country: US (occurrence: None)
  Receive Date: 20140416
  Receipt Date: 20140416
  Transmission Date: 20141212
  Serious: Yes (Hospitalization)
  Sender: FDA-Public Use
  Company Number: 163-POMAL-14011942

PATIENT
  Age: 45 Year
  Sex: Female
  Weight: 104 kg

DRUGS (16)
  1. POMALYST (POMALIDOMIDE) (4 MILLIGRAM, CAPSULES) [Suspect]
     Indication: PLASMA CELL MYELOMA
     Dosage: 4 MG, 21 IN 21 D, PO
     Route: 048
     Dates: start: 20131212
  2. CLONIDINE HCL (CLONIDINE HYDROCHLORIDE) (UNKNOWN) [Concomitant]
  3. LOSARTAN POTASSIUM (LOSARTAN POTASSIUM) (UNKNOWN) [Concomitant]
  4. TRIAMTERENE-HCTZ (DYAZIDE) (UNKNOWN) [Concomitant]
  5. PREDNISONE (PREDNISONE) (UNKNOWN) [Concomitant]
  6. FLUTICASONE PROPIONATE (FLUTICASONE PROPIONATE) (UNKNOWN) [Concomitant]
  7. FUROSEMIDE (FUROSEMIDE) (UNKNOWN) [Concomitant]
  8. VITAMIN D2 (ERGOCALCIFEROL) (UNKNOWN) [Concomitant]
  9. HYDROCODONE-ACETAMINOPHEN (VICODIN) (UNKNOWN) [Concomitant]
  10. ATORVASTATIN CALCIUM (ATORVASTATIN CALCIUM) (UNKNOWN) [Concomitant]
  11. AMLODIPINE BESYLATE (AMLODIPINE BESILATE) (UNKNOWN) [Concomitant]
  12. METFORMIN HCL (METFORMIN HYDROCHLORIDE) (UNKNOWN) [Concomitant]
  13. NOVOLOG (INSULIN ASPART) (UNKNOWN) [Concomitant]
  14. LEVMIR (INSULIN DETEMIR) (UNKNOWN) [Concomitant]
  15. DEXAMETHASONE (DEXAMETHASONE) (UNKNOWN) [Concomitant]
  16. MONTELUKAST SODIUM (MONTELUKAST SODIUM) (UNKNOWN) [Concomitant]

REACTIONS (1)
  - Influenza [None]
